FAERS Safety Report 16946877 (Version 1)
Quarter: 2019Q4

REPORT INFORMATION
  Report Type: Spontaneous
  Country: CA (occurrence: CA)
  Receive Date: 20191022
  Receipt Date: 20191022
  Transmission Date: 20200122
  Serious: Yes (Life-Threatening, Hospitalization, Other)
  Sender: FDA-Public Use
  Company Number: CA-TEVA-2019-CA-1124816

PATIENT
  Age: 72 Year
  Sex: Male
  Weight: 76 kg

DRUGS (10)
  1. VORICONAZOLE. [Suspect]
     Active Substance: VORICONAZOLE
     Indication: LOWER RESPIRATORY TRACT INFECTION FUNGAL
     Dosage: 600 MILLIGRAM DAILY;
     Route: 048
  2. ACETYLSALICYLIC ACID [Concomitant]
     Active Substance: ASPIRIN
  3. COLCHICINE. [Concomitant]
     Active Substance: COLCHICINE
  4. BRILINTA [Suspect]
     Active Substance: TICAGRELOR
     Indication: ACUTE MYOCARDIAL INFARCTION
     Dosage: 180 MILLIGRAM DAILY;
     Route: 048
  5. PANTOPRAZOLE [Concomitant]
     Active Substance: PANTOPRAZOLE
  6. HEPARIN SODIUM. [Concomitant]
     Active Substance: HEPARIN SODIUM
  7. GLUCOSE/SODIUM CHLORIDE [Concomitant]
     Active Substance: DEXTROSE\SODIUM CHLORIDE
  8. NOVORAPID [Concomitant]
     Active Substance: INSULIN ASPART
  9. QUETIAPINE. [Concomitant]
     Active Substance: QUETIAPINE
  10. BRILINTA [Suspect]
     Active Substance: TICAGRELOR
     Indication: ARTERIOSCLEROSIS
     Route: 065

REACTIONS (2)
  - Sinus arrest [Unknown]
  - Atrioventricular block complete [Unknown]
